FAERS Safety Report 11864547 (Version 2)
Quarter: 2015Q4

REPORT INFORMATION
  Report Type: Spontaneous
  Country: TW (occurrence: TW)
  Receive Date: 20151223
  Receipt Date: 20151227
  Transmission Date: 20160305
  Serious: Yes (Other)
  Sender: FDA-Public Use
  Company Number: TW-TEVA-620545ISR

PATIENT
  Age: 45 Year
  Sex: Male

DRUGS (1)
  1. METHOTREXATE [Suspect]
     Active Substance: METHOTREXATE
     Indication: PSORIASIS

REACTIONS (2)
  - Psoriasis [Recovering/Resolving]
  - Kaposi^s varicelliform eruption [Recovering/Resolving]
